FAERS Safety Report 6787732-5 (Version None)
Quarter: 2010Q2

REPORT INFORMATION
  Report Type: 
  Country: None (occurrence: None)
  Receive Date: 20100623
  Receipt Date: 20070711
  Transmission Date: 20101027
  Serious: Yes (Other)
  Sender: FDA-Public Use
  Company Number: US-PFIZER INC-2007057143

PATIENT
  Sex: Female
  Weight: 83 kg

DRUGS (2)
  1. DEPO-SUBQ PROVERA 104 [Suspect]
     Indication: CONTRACEPTION
     Route: 030
     Dates: start: 20060718, end: 20060718
  2. HYDROCHLOROTHIAZIDE [Concomitant]

REACTIONS (3)
  - AMENORRHOEA [None]
  - INCORRECT ROUTE OF DRUG ADMINISTRATION [None]
  - METRORRHAGIA [None]
